FAERS Safety Report 9678398 (Version 1)
Quarter: 2013Q4

REPORT INFORMATION
  Report Type: Spontaneous
  Country: US (occurrence: US)
  Receive Date: 20131108
  Receipt Date: 20131108
  Transmission Date: 20140711
  Serious: No
  Sender: FDA-Public Use
  Company Number: US-UPSHER-SMITH LABORATORIES, INC.-13003388

PATIENT
  Age: 86 Year
  Sex: Male

DRUGS (4)
  1. JANTOVEN [Suspect]
     Indication: CARDIAC DISORDER
     Dosage: 6 MG W AND SA, 4 MG ALL OTHER DAYS OF WEEK
     Route: 048
     Dates: start: 201308
  2. CARVEDILOL [Concomitant]
     Dosage: UNK
  3. LISINOPRIL [Concomitant]
     Dosage: UNK
  4. OXYGEN [Concomitant]
     Dosage: UNK

REACTIONS (2)
  - Rash erythematous [Not Recovered/Not Resolved]
  - Rash pruritic [Not Recovered/Not Resolved]
